FAERS Safety Report 10471847 (Version 2)
Quarter: 2014Q4

REPORT INFORMATION
  Report Type: Report from Study
  Country: CA (occurrence: CA)
  Receive Date: 20140924
  Receipt Date: 20141208
  Transmission Date: 20150528
  Serious: Yes (Other)
  Sender: FDA-Public Use
  Company Number: CA-AMGEN-CANSP2014072466

PATIENT
  Age: 75 Year
  Sex: Female

DRUGS (1)
  1. PROLIA [Suspect]
     Active Substance: DENOSUMAB
     Indication: OSTEOPOROSIS POSTMENOPAUSAL
     Dosage: 60 MG/ML, UNK
     Route: 065
     Dates: start: 20131009

REACTIONS (5)
  - Feeling hot [Not Recovered/Not Resolved]
  - Dry throat [Unknown]
  - Erythema [Unknown]
  - Rash [Unknown]
  - Neoplasm malignant [Unknown]
